FAERS Safety Report 10075546 (Version 1)
Quarter: 2014Q2

REPORT INFORMATION
  Report Type: Report from Study
  Country: JP (occurrence: JP)
  Receive Date: 20140414
  Receipt Date: 20140414
  Transmission Date: 20141212
  Serious: Yes (Hospitalization)
  Sender: FDA-Public Use
  Company Number: JP-JNJFOC-20140404568

PATIENT
  Age: 79 Year
  Sex: Male
  Weight: 69 kg

DRUGS (13)
  1. XARELTO [Suspect]
     Indication: ATRIAL FIBRILLATION
     Route: 048
     Dates: start: 20130913, end: 20131228
  2. XARELTO [Suspect]
     Indication: THROMBOSIS PROPHYLAXIS
     Route: 048
     Dates: start: 20130913, end: 20131228
  3. XARELTO [Suspect]
     Indication: CEREBROVASCULAR ACCIDENT PROPHYLAXIS
     Route: 048
     Dates: start: 20130913, end: 20131228
  4. MEVALOTIN [Concomitant]
     Route: 048
  5. NORVASC [Concomitant]
     Route: 048
  6. BISOPROLOL FUMARATE [Concomitant]
     Route: 048
  7. BAYASPIRIN [Concomitant]
     Route: 048
  8. MEXILETINE HYDROCHLORIDE [Concomitant]
     Route: 048
  9. SUNRYTHM [Concomitant]
     Route: 048
  10. CATLEP [Concomitant]
     Route: 062
  11. MOHRUS [Concomitant]
     Route: 062
  12. MICARDIS [Concomitant]
     Route: 048
  13. FLUTRIA [Concomitant]
     Route: 048

REACTIONS (2)
  - Ischaemic stroke [Recovering/Resolving]
  - Ischaemic stroke [Recovering/Resolving]
